FAERS Safety Report 8380575-0 (Version None)
Quarter: 2012Q2

REPORT INFORMATION
  Report Type: 
  Country: None (occurrence: None)
  Receive Date: 20120523
  Receipt Date: 20120516
  Transmission Date: 20120825
  Serious: Yes (Hospitalization)
  Sender: FDA-Public Use
  Company Number: US-BAYER-2012-049616

PATIENT
  Age: 24 Year
  Sex: Female
  Weight: 61.224 kg

DRUGS (8)
  1. YAZ [Suspect]
     Dosage: UNK
  2. PHENERGAN [Concomitant]
  3. DILAUDID [Concomitant]
  4. TORADOL [Concomitant]
  5. ATIVAN [Concomitant]
     Indication: HEADACHE
  6. YASMIN [Suspect]
  7. IV FLUIDS [Concomitant]
  8. KEPPRA [Concomitant]
     Indication: CONVULSION
     Dosage: 500 MG, BID

REACTIONS (2)
  - CEREBRAL HAEMATOMA [None]
  - SUBARACHNOID HAEMORRHAGE [None]
